FAERS Safety Report 5207536-4 (Version None)
Quarter: 2006Q4

REPORT INFORMATION
  Report Type: 
  Country: None (occurrence: None)
  Receive Date: 20061030
  Receipt Date: 20060712
  Transmission Date: 20070319
  Serious: No
  Sender: FDA-Public Use
  Company Number: 2006CT000647

PATIENT
  Age: 48 Year
  Sex: Female
  Weight: 113.3993 kg

DRUGS (2)
  1. VENTAVIS [Suspect]
     Indication: PULMONARY HYPERTENSION
     Dosage: 5 UG; 6TO9X/DAY; INH
     Route: 055
     Dates: start: 20060614
  2. SILDENAFIL CITRATE [Suspect]
     Dates: start: 20060601

REACTIONS (2)
  - PHOTOPHOBIA [None]
  - VISION BLURRED [None]
